FAERS Safety Report 16899455 (Version 1)
Quarter: 2019Q4

REPORT INFORMATION
  Report Type: Spontaneous
  Country: CN (occurrence: CN)
  Receive Date: 20191009
  Receipt Date: 20191009
  Transmission Date: 20200122
  Serious: Yes (Other)
  Sender: FDA-Public Use
  Company Number: CN-ROCHE-2428002

PATIENT

DRUGS (1)
  1. LUCENTIS [Suspect]
     Active Substance: RANIBIZUMAB
     Indication: RETINOPATHY OF PREMATURITY
     Dosage: 10 MG/ML, UNK
     Route: 031

REACTIONS (3)
  - Retinopathy of prematurity [Unknown]
  - Prescribed overdose [Unknown]
  - Product use issue [Unknown]
